FAERS Safety Report 8538613-8 (Version None)
Quarter: 2012Q3

REPORT INFORMATION
  Report Type: 
  Country: None (occurrence: None)
  Receive Date: 20120718
  Receipt Date: 20120718
  Transmission Date: 20120928
  Serious: Yes (Other)
  Sender: FDA-Public Use
  Company Number: None

PATIENT
  Sex: Male
  Weight: 81.6475 kg

DRUGS (1)
  1. CHANTIX [Suspect]
     Indication: SMOKING CESSATION THERAPY
     Dosage: 1 MG TABLETS 2X DAILY ORAL
     Route: 048
     Dates: start: 20111226, end: 20120416

REACTIONS (8)
  - ABNORMAL DREAMS [None]
  - RESTLESSNESS [None]
  - MANIA [None]
  - NAUSEA [None]
  - LOSS OF EMPLOYMENT [None]
  - THINKING ABNORMAL [None]
  - ABNORMAL BEHAVIOUR [None]
  - PARANOIA [None]
